FAERS Safety Report 10443591 (Version 3)
Quarter: 2015Q1

REPORT INFORMATION
  Report Type: Spontaneous
  Country: US (occurrence: US)
  Receive Date: 20140910
  Receipt Date: 20150319
  Transmission Date: 20150720
  Serious: No
  Sender: FDA-Public Use
  Company Number: US-BIOGENIDEC-2014BI090473

PATIENT
  Age: 54 Year
  Sex: Female

DRUGS (4)
  1. VITAMIN D3 COMPLETE [Concomitant]
  2. LORATADINE. [Concomitant]
     Active Substance: LORATADINE
  3. TECFIDERA [Suspect]
     Active Substance: DIMETHYL FUMARATE
     Indication: MULTIPLE SCLEROSIS
     Route: 048
  4. ALPHA LIPOIC ACID [Concomitant]
     Active Substance: .ALPHA.-LIPOIC ACID

REACTIONS (3)
  - Flushing [Unknown]
  - Rash pruritic [Unknown]
  - Extra dose administered [Unknown]

NARRATIVE: CASE EVENT DATE: 20140828
